FAERS Safety Report 6087751-0 (Version None)
Quarter: 2009Q1

REPORT INFORMATION
  Report Type: 
  Country: None (occurrence: None)
  Receive Date: 20090219
  Receipt Date: 20090106
  Transmission Date: 20090719
  Serious: No
  Sender: FDA-Public Use
  Company Number: WAES 0901USA01121

PATIENT
  Age: 80 Year
  Sex: Female

DRUGS (8)
  1. JANUVIA [Suspect]
     Dosage: PO
     Route: 048
  2. BENICAR [Concomitant]
  3. PRILOSEC [Concomitant]
  4. VICODIN [Concomitant]
  5. VISTARIL [Concomitant]
  6. LEVOTHYROXINE SODIUM [Concomitant]
  7. MECLIZINE [Concomitant]
  8. SIMVASTATIN [Concomitant]

REACTIONS (2)
  - PAIN [None]
  - RASH PRURITIC [None]
